FAERS Safety Report 9961510 (Version 1)
Quarter: 2014Q1

REPORT INFORMATION
  Report Type: Spontaneous
  Country: US (occurrence: US)
  Receive Date: 20140305
  Receipt Date: 20140305
  Transmission Date: 20141002
  Serious: Yes (Other)
  Sender: FDA-Public Use
  Company Number: US-SA-2014SA027769

PATIENT
  Age: 76 Year
  Sex: Female

DRUGS (3)
  1. LANTUS SOLOSTAR [Suspect]
     Indication: TYPE 2 DIABETES MELLITUS
     Dosage: DOSE:60 UNIT(S)
     Route: 058
  2. LANTUS [Suspect]
     Route: 058
  3. SOLOSTAR [Concomitant]
     Indication: TYPE 2 DIABETES MELLITUS

REACTIONS (3)
  - Neoplasm malignant [Unknown]
  - Post procedural persistent drain fluid [Unknown]
  - Post procedural haemorrhage [Unknown]
